FAERS Safety Report 5254676-X (Version None)
Quarter: 2007Q1

REPORT INFORMATION
  Report Type: 
  Country: None (occurrence: None)
  Receive Date: 20070302
  Receipt Date: 20070223
  Transmission Date: 20070707
  Serious: Yes (Life-Threatening)
  Sender: FDA-Public Use
  Company Number: FR-BAXTER-2007BH002276

PATIENT
  Sex: Male

DRUGS (5)
  1. SUPRANE [Suspect]
     Indication: SURGERY
     Dosage: DOSE UNIT:UNKNOWN
     Route: 055
     Dates: start: 20070216, end: 20070216
  2. DIPRIVAN [Concomitant]
  3. CELOCURIN [Concomitant]
  4. ALFENTANIL [Concomitant]
  5. RINGER LACTATE (IV) [Concomitant]

REACTIONS (3)
  - BRADYCARDIA [None]
  - CARDIAC ARREST [None]
  - DEVICE MALFUNCTION [None]
